FAERS Safety Report 10489645 (Version 1)
Quarter: 2014Q4

REPORT INFORMATION
  Report Type: Spontaneous
  Country: IN (occurrence: IN)
  Receive Date: 20141002
  Receipt Date: 20141002
  Transmission Date: 20150528
  Serious: Yes (Life-Threatening)
  Sender: FDA-Public Use
  Company Number: PHHY2014IN127088

PATIENT
  Sex: Male

DRUGS (2)
  1. NALTREXONE [Suspect]
     Active Substance: NALTREXONE
  2. TRAMADOL [Suspect]
     Active Substance: TRAMADOL
     Dosage: 2000 MG, UNK

REACTIONS (1)
  - Seizure [Unknown]
